FAERS Safety Report 24657476 (Version 4)
Quarter: 2025Q3

REPORT INFORMATION
  Report Type: Spontaneous
  Country: CA (occurrence: CA)
  Receive Date: 20241125
  Receipt Date: 20250904
  Transmission Date: 20251020
  Serious: Yes (Death, Life-Threatening, Hospitalization, Disabling, Congenital Anomaly, Other)
  Sender: Haleon PLC
  Company Number: CA-HEALTHCANVIG-00914024

PATIENT
  Age: 43 Year
  Sex: Female
  Weight: 70 kg

DRUGS (342)
  1. DICLOFENAC SODIUM [Suspect]
     Active Substance: DICLOFENAC SODIUM
     Indication: Rheumatoid arthritis
     Route: 065
  2. DICLOFENAC SODIUM [Suspect]
     Active Substance: DICLOFENAC SODIUM
     Indication: Product used for unknown indication
     Route: 065
  3. DICLOFENAC SODIUM [Suspect]
     Active Substance: DICLOFENAC SODIUM
  4. DICLOFENAC SODIUM [Suspect]
     Active Substance: DICLOFENAC SODIUM
     Route: 065
  5. DICLOFENAC SODIUM [Suspect]
     Active Substance: DICLOFENAC SODIUM
     Route: 065
  6. DICLOFENAC SODIUM [Suspect]
     Active Substance: DICLOFENAC SODIUM
  7. DICLOFENAC SODIUM [Suspect]
     Active Substance: DICLOFENAC SODIUM
     Route: 065
  8. DICLOFENAC SODIUM [Suspect]
     Active Substance: DICLOFENAC SODIUM
  9. DICLOFENAC SODIUM [Suspect]
     Active Substance: DICLOFENAC SODIUM
     Route: 065
  10. DICLOFENAC SODIUM [Suspect]
     Active Substance: DICLOFENAC SODIUM
  11. DICLOFENAC SODIUM [Suspect]
     Active Substance: DICLOFENAC SODIUM
     Route: 065
  12. DICLOFENAC SODIUM [Suspect]
     Active Substance: DICLOFENAC SODIUM
  13. DICLOFENAC SODIUM [Suspect]
     Active Substance: DICLOFENAC SODIUM
     Dosage: 50 MG, QD
     Route: 065
  14. DICLOFENAC SODIUM [Suspect]
     Active Substance: DICLOFENAC SODIUM
  15. DICLOFENAC SODIUM [Suspect]
     Active Substance: DICLOFENAC SODIUM
     Route: 065
  16. DICLOFENAC SODIUM [Suspect]
     Active Substance: DICLOFENAC SODIUM
     Route: 065
  17. DICLOFENAC SODIUM [Suspect]
     Active Substance: DICLOFENAC SODIUM
     Route: 065
  18. DICLOFENAC SODIUM [Suspect]
     Active Substance: DICLOFENAC SODIUM
     Route: 065
  19. DICLOFENAC SODIUM [Suspect]
     Active Substance: DICLOFENAC SODIUM
     Route: 065
  20. DICLOFENAC SODIUM [Suspect]
     Active Substance: DICLOFENAC SODIUM
  21. DICLOFENAC SODIUM [Suspect]
     Active Substance: DICLOFENAC SODIUM
  22. COSENTYX [Concomitant]
     Active Substance: SECUKINUMAB
     Indication: Rheumatoid arthritis
     Route: 065
  23. COSENTYX [Concomitant]
     Active Substance: SECUKINUMAB
     Indication: Psoriatic arthropathy
     Route: 065
  24. COSENTYX [Concomitant]
     Active Substance: SECUKINUMAB
  25. COSENTYX [Concomitant]
     Active Substance: SECUKINUMAB
  26. OXYCODONE [Suspect]
     Active Substance: OXYCODONE
     Indication: Product used for unknown indication
  27. OXYCODONE [Suspect]
     Active Substance: OXYCODONE
  28. OXYCODONE [Suspect]
     Active Substance: OXYCODONE
  29. OXYCODONE [Suspect]
     Active Substance: OXYCODONE
  30. VOLTAREN [Suspect]
     Active Substance: DICLOFENAC SODIUM
     Indication: Product used for unknown indication
  31. PERIOGARD [Suspect]
     Active Substance: CHLORHEXIDINE GLUCONATE
     Indication: Product used for unknown indication
     Route: 002
  32. PERIOGARD [Suspect]
     Active Substance: CHLORHEXIDINE GLUCONATE
     Route: 002
  33. ENBREL [Suspect]
     Active Substance: ETANERCEPT
     Indication: Rheumatoid arthritis
     Route: 058
  34. ENBREL [Suspect]
     Active Substance: ETANERCEPT
     Indication: Psoriatic arthropathy
  35. ENBREL [Suspect]
     Active Substance: ETANERCEPT
  36. ENBREL [Suspect]
     Active Substance: ETANERCEPT
     Route: 058
  37. ENBREL [Suspect]
     Active Substance: ETANERCEPT
     Route: 058
  38. ENBREL [Suspect]
     Active Substance: ETANERCEPT
     Route: 058
  39. ENBREL [Suspect]
     Active Substance: ETANERCEPT
     Route: 058
  40. CALTRATE [Suspect]
     Active Substance: CALCIUM CARBONATE
     Indication: Product used for unknown indication
  41. CALTRATE [Suspect]
     Active Substance: CALCIUM CARBONATE
  42. OTEZLA [Suspect]
     Active Substance: APREMILAST
     Indication: Product used for unknown indication
     Route: 048
  43. OTEZLA [Suspect]
     Active Substance: APREMILAST
  44. OTEZLA [Suspect]
     Active Substance: APREMILAST
  45. TUMS [Suspect]
     Active Substance: CALCIUM CARBONATE
     Indication: Product used for unknown indication
  46. CALTRATE [Suspect]
     Active Substance: CALCIUM CARBONATE
     Indication: Product used for unknown indication
  47. CALTRATE [Suspect]
     Active Substance: CALCIUM CARBONATE
  48. TOCILIZUMAB [Suspect]
     Active Substance: TOCILIZUMAB
     Indication: Rheumatoid arthritis
     Route: 058
  49. ACETAMINOPHEN [Suspect]
     Active Substance: ACETAMINOPHEN
     Indication: Product used for unknown indication
  50. ACETAMINOPHEN [Suspect]
     Active Substance: ACETAMINOPHEN
  51. RITUXIMAB [Suspect]
     Active Substance: RITUXIMAB
     Indication: Rheumatoid arthritis
     Route: 058
  52. RITUXIMAB [Suspect]
     Active Substance: RITUXIMAB
     Route: 058
  53. RITUXIMAB [Suspect]
     Active Substance: RITUXIMAB
  54. RITUXIMAB [Suspect]
     Active Substance: RITUXIMAB
     Route: 016
  55. RITUXIMAB [Suspect]
     Active Substance: RITUXIMAB
     Route: 042
  56. RITUXIMAB [Suspect]
     Active Substance: RITUXIMAB
     Route: 042
  57. RITUXIMAB [Suspect]
     Active Substance: RITUXIMAB
     Route: 042
  58. RITUXIMAB [Suspect]
     Active Substance: RITUXIMAB
  59. RITUXIMAB [Suspect]
     Active Substance: RITUXIMAB
     Route: 016
  60. RITUXIMAB [Suspect]
     Active Substance: RITUXIMAB
     Route: 042
  61. PREDNISONE [Suspect]
     Active Substance: PREDNISONE
     Indication: Rheumatoid arthritis
     Route: 048
  62. PREDNISONE [Suspect]
     Active Substance: PREDNISONE
     Route: 048
  63. PREDNISONE [Suspect]
     Active Substance: PREDNISONE
     Route: 048
  64. PREDNISONE [Suspect]
     Active Substance: PREDNISONE
     Route: 042
  65. PREDNISONE [Suspect]
     Active Substance: PREDNISONE
  66. PREDNISONE [Suspect]
     Active Substance: PREDNISONE
  67. PREDNISONE [Suspect]
     Active Substance: PREDNISONE
  68. PREDNISONE [Suspect]
     Active Substance: PREDNISONE
  69. TYLENOL [Concomitant]
     Active Substance: ACETAMINOPHEN
     Indication: Product used for unknown indication
  70. TYLENOL [Concomitant]
     Active Substance: ACETAMINOPHEN
  71. RAMIPRIL [Concomitant]
     Active Substance: RAMIPRIL
     Indication: Product used for unknown indication
  72. RAMIPRIL [Concomitant]
     Active Substance: RAMIPRIL
  73. CIMZIA [Suspect]
     Active Substance: CERTOLIZUMAB PEGOL
     Indication: Rheumatoid arthritis
     Route: 058
  74. CIMZIA [Suspect]
     Active Substance: CERTOLIZUMAB PEGOL
     Route: 058
  75. CIMZIA [Suspect]
     Active Substance: CERTOLIZUMAB PEGOL
     Route: 058
  76. DOXYCYCLINE [Suspect]
     Active Substance: DOXYCYCLINE
     Indication: Product used for unknown indication
  77. FOLIC ACID [Suspect]
     Active Substance: FOLIC ACID
     Indication: Rheumatoid arthritis
  78. FOLIC ACID [Suspect]
     Active Substance: FOLIC ACID
  79. FOLIC ACID [Suspect]
     Active Substance: FOLIC ACID
     Route: 048
  80. FOLIC ACID [Suspect]
     Active Substance: FOLIC ACID
     Route: 048
  81. FOLIC ACID [Suspect]
     Active Substance: FOLIC ACID
  82. FOLIC ACID [Suspect]
     Active Substance: FOLIC ACID
  83. FOLIC ACID [Suspect]
     Active Substance: FOLIC ACID
  84. FOLIC ACID [Suspect]
     Active Substance: FOLIC ACID
  85. FOLIC ACID [Suspect]
     Active Substance: FOLIC ACID
     Route: 058
  86. FOLIC ACID [Suspect]
     Active Substance: FOLIC ACID
  87. PHTHALYLSULFATHIAZOLE [Suspect]
     Active Substance: PHTHALYLSULFATHIAZOLE
     Indication: Rheumatoid arthritis
     Route: 048
  88. PHTHALYLSULFATHIAZOLE [Suspect]
     Active Substance: PHTHALYLSULFATHIAZOLE
  89. PHTHALYLSULFATHIAZOLE [Suspect]
     Active Substance: PHTHALYLSULFATHIAZOLE
     Route: 048
  90. PHTHALYLSULFATHIAZOLE [Suspect]
     Active Substance: PHTHALYLSULFATHIAZOLE
     Route: 048
  91. PHTHALYLSULFATHIAZOLE [Suspect]
     Active Substance: PHTHALYLSULFATHIAZOLE
  92. PHTHALYLSULFATHIAZOLE [Suspect]
     Active Substance: PHTHALYLSULFATHIAZOLE
  93. DESOXIMETASONE [Suspect]
     Active Substance: DESOXIMETASONE
     Indication: Rheumatoid arthritis
     Route: 058
  94. DESOXIMETASONE [Suspect]
     Active Substance: DESOXIMETASONE
     Route: 058
  95. DESOXIMETASONE [Suspect]
     Active Substance: DESOXIMETASONE
     Route: 048
  96. DESOXIMETASONE [Suspect]
     Active Substance: DESOXIMETASONE
  97. DESOXIMETASONE [Suspect]
     Active Substance: DESOXIMETASONE
  98. DESOXIMETASONE [Suspect]
     Active Substance: DESOXIMETASONE
  99. PANTOPRAZOLE SODIUM ANHYDROUS [Concomitant]
     Active Substance: PANTOPRAZOLE SODIUM ANHYDROUS
     Indication: Product used for unknown indication
  100. PANTOPRAZOLE SODIUM ANHYDROUS [Concomitant]
     Active Substance: PANTOPRAZOLE SODIUM ANHYDROUS
  101. PLAQUENIL [Suspect]
     Active Substance: HYDROXYCHLOROQUINE SULFATE
     Indication: Rheumatoid arthritis
     Dosage: 1 DOSAGE FORM, QD
  102. PLAQUENIL [Suspect]
     Active Substance: HYDROXYCHLOROQUINE SULFATE
     Dosage: 40 MG, QD
     Route: 048
  103. PLAQUENIL [Suspect]
     Active Substance: HYDROXYCHLOROQUINE SULFATE
  104. PLAQUENIL [Suspect]
     Active Substance: HYDROXYCHLOROQUINE SULFATE
     Route: 048
  105. PLAQUENIL [Suspect]
     Active Substance: HYDROXYCHLOROQUINE SULFATE
  106. PLAQUENIL [Suspect]
     Active Substance: HYDROXYCHLOROQUINE SULFATE
     Dosage: 40 MG, QD
  107. PLAQUENIL [Suspect]
     Active Substance: HYDROXYCHLOROQUINE SULFATE
     Dosage: 400 MG, QD
     Route: 048
  108. PLAQUENIL [Suspect]
     Active Substance: HYDROXYCHLOROQUINE SULFATE
  109. PLAQUENIL [Suspect]
     Active Substance: HYDROXYCHLOROQUINE SULFATE
     Route: 048
  110. ETHINYL ESTRADIOL [Concomitant]
     Active Substance: ETHINYL ESTRADIOL
     Indication: Product used for unknown indication
  111. ETHINYL ESTRADIOL [Concomitant]
     Active Substance: ETHINYL ESTRADIOL
  112. LEFLUNOMIDE [Concomitant]
     Active Substance: LEFLUNOMIDE
     Indication: Product used for unknown indication
  113. LEFLUNOMIDE [Concomitant]
     Active Substance: LEFLUNOMIDE
  114. VOLTAREN [Suspect]
     Active Substance: DICLOFENAC SODIUM
     Indication: Product used for unknown indication
  115. VOLTAREN [Suspect]
     Active Substance: DICLOFENAC SODIUM
  116. VOLTAREN [Suspect]
     Active Substance: DICLOFENAC SODIUM
  117. ACTEMRA [Suspect]
     Active Substance: TOCILIZUMAB
     Indication: Rheumatoid arthritis
     Route: 048
  118. ACTEMRA [Suspect]
     Active Substance: TOCILIZUMAB
  119. ACTEMRA [Suspect]
     Active Substance: TOCILIZUMAB
     Route: 042
  120. ACTEMRA [Suspect]
     Active Substance: TOCILIZUMAB
     Route: 042
  121. ACTEMRA [Suspect]
     Active Substance: TOCILIZUMAB
     Route: 042
  122. ACTEMRA [Suspect]
     Active Substance: TOCILIZUMAB
     Route: 058
  123. ACTEMRA [Suspect]
     Active Substance: TOCILIZUMAB
     Route: 042
  124. HYDROXYCHLOROQUINE SULFATE [Suspect]
     Active Substance: HYDROXYCHLOROQUINE SULFATE
     Indication: Rheumatoid arthritis
  125. HYDROXYCHLOROQUINE SULFATE [Suspect]
     Active Substance: HYDROXYCHLOROQUINE SULFATE
     Route: 048
  126. HYDROXYCHLOROQUINE SULFATE [Suspect]
     Active Substance: HYDROXYCHLOROQUINE SULFATE
     Route: 066
  127. HYDROXYCHLOROQUINE SULFATE [Suspect]
     Active Substance: HYDROXYCHLOROQUINE SULFATE
     Dosage: 400 MG, QD
     Route: 066
  128. HYDROXYCHLOROQUINE SULFATE [Suspect]
     Active Substance: HYDROXYCHLOROQUINE SULFATE
  129. HYDROXYCHLOROQUINE SULFATE [Suspect]
     Active Substance: HYDROXYCHLOROQUINE SULFATE
     Route: 048
  130. HYDROXYCHLOROQUINE SULFATE [Suspect]
     Active Substance: HYDROXYCHLOROQUINE SULFATE
  131. HYDROXYCHLOROQUINE SULFATE [Suspect]
     Active Substance: HYDROXYCHLOROQUINE SULFATE
     Route: 048
  132. PANTOPRAZOLE [Concomitant]
     Active Substance: PANTOPRAZOLE
     Indication: Product used for unknown indication
  133. PANTOPRAZOLE [Concomitant]
     Active Substance: PANTOPRAZOLE
  134. SULFAMETHOXAZOLE\TRIMETHOPRIM [Suspect]
     Active Substance: SULFAMETHOXAZOLE\TRIMETHOPRIM
     Indication: Product used for unknown indication
  135. HUMIRA [Suspect]
     Active Substance: ADALIMUMAB
     Indication: Rheumatoid arthritis
     Route: 058
  136. HUMIRA [Suspect]
     Active Substance: ADALIMUMAB
  137. HUMIRA [Suspect]
     Active Substance: ADALIMUMAB
     Route: 058
  138. LYRICA [Suspect]
     Active Substance: PREGABALIN
     Indication: Product used for unknown indication
  139. LYRICA [Suspect]
     Active Substance: PREGABALIN
  140. CETIRIZINE [Suspect]
     Active Substance: CETIRIZINE HYDROCHLORIDE
     Indication: Rheumatoid arthritis
  141. CETIRIZINE [Suspect]
     Active Substance: CETIRIZINE HYDROCHLORIDE
  142. APREMILAST [Suspect]
     Active Substance: APREMILAST
     Indication: Product used for unknown indication
  143. INFLIXIMAB [Suspect]
     Active Substance: INFLIXIMAB
     Indication: Rheumatoid arthritis
  144. INFLIXIMAB [Suspect]
     Active Substance: INFLIXIMAB
     Route: 042
  145. STELARA [Suspect]
     Active Substance: USTEKINUMAB
     Indication: Product used for unknown indication
     Route: 042
  146. STELARA [Suspect]
     Active Substance: USTEKINUMAB
     Route: 058
  147. STELARA [Suspect]
     Active Substance: USTEKINUMAB
  148. CAFFEINE CITRATE [Concomitant]
     Active Substance: CAFFEINE CITRATE
     Indication: Product used for unknown indication
  149. CAFFEINE CITRATE [Concomitant]
     Active Substance: CAFFEINE CITRATE
  150. SIMPONI [Suspect]
     Active Substance: GOLIMUMAB
     Indication: Rheumatoid arthritis
     Route: 058
  151. SIMPONI [Suspect]
     Active Substance: GOLIMUMAB
  152. SIMPONI [Suspect]
     Active Substance: GOLIMUMAB
     Route: 042
  153. ETHINYL ESTRADIOL\NORETHINDRONE [Concomitant]
     Active Substance: ETHINYL ESTRADIOL\NORETHINDRONE
     Indication: Product used for unknown indication
  154. ETHINYL ESTRADIOL\NORETHINDRONE [Concomitant]
     Active Substance: ETHINYL ESTRADIOL\NORETHINDRONE
  155. IBUPROFEN [Concomitant]
     Active Substance: IBUPROFEN
     Indication: Product used for unknown indication
  156. IBUPROFEN [Concomitant]
     Active Substance: IBUPROFEN
  157. LISINOPRIL [Concomitant]
     Active Substance: LISINOPRIL
     Indication: Product used for unknown indication
  158. LISINOPRIL [Concomitant]
     Active Substance: LISINOPRIL
  159. CAFFEINE [Concomitant]
     Active Substance: CAFFEINE
     Indication: Product used for unknown indication
  160. CAFFEINE [Concomitant]
     Active Substance: CAFFEINE
  161. ERGOCALCIFEROL [Concomitant]
     Active Substance: ERGOCALCIFEROL
     Indication: Product used for unknown indication
  162. ERGOCALCIFEROL [Concomitant]
     Active Substance: ERGOCALCIFEROL
  163. MYCOPHENOLATE MOFETIL [Suspect]
     Active Substance: MYCOPHENOLATE MOFETIL
     Indication: Product used for unknown indication
  164. MYCOPHENOLATE MOFETIL [Suspect]
     Active Substance: MYCOPHENOLATE MOFETIL
  165. PREDNISOLONE [Concomitant]
     Active Substance: PREDNISOLONE
     Indication: Product used for unknown indication
  166. PREDNISOLONE [Concomitant]
     Active Substance: PREDNISOLONE
  167. SULFAMETHOXAZOLE [Suspect]
     Active Substance: SULFAMETHOXAZOLE
     Indication: Product used for unknown indication
  168. FOSAMAX [Suspect]
     Active Substance: ALENDRONATE SODIUM
     Indication: Rheumatoid arthritis
  169. FOSAMAX [Suspect]
     Active Substance: ALENDRONATE SODIUM
  170. FOSAMAX [Suspect]
     Active Substance: ALENDRONATE SODIUM
     Route: 048
  171. FOSAMAX [Suspect]
     Active Substance: ALENDRONATE SODIUM
     Route: 048
  172. CODEINE [Concomitant]
     Active Substance: CODEINE
     Indication: Product used for unknown indication
  173. CODEINE [Concomitant]
     Active Substance: CODEINE
  174. ADALIMUMAB [Suspect]
     Active Substance: ADALIMUMAB
     Indication: Rheumatoid arthritis
     Route: 058
  175. MORPHINE [Concomitant]
     Active Substance: MORPHINE
     Indication: Product used for unknown indication
  176. MORPHINE [Concomitant]
     Active Substance: MORPHINE
  177. PREDNISONE [Suspect]
     Active Substance: PREDNISONE
     Indication: Rheumatoid arthritis
     Route: 048
  178. PREDNISONE [Suspect]
     Active Substance: PREDNISONE
     Route: 048
  179. QUETIAPINE [Concomitant]
     Active Substance: QUETIAPINE
     Indication: Product used for unknown indication
  180. QUETIAPINE [Concomitant]
     Active Substance: QUETIAPINE
  181. COSENTYX [Suspect]
     Active Substance: SECUKINUMAB
     Indication: Psoriatic arthropathy
  182. COSENTYX [Suspect]
     Active Substance: SECUKINUMAB
  183. COSENTYX [Suspect]
     Active Substance: SECUKINUMAB
  184. PSEUDOEPHEDRINE HYDROCHLORIDE [Suspect]
     Active Substance: PSEUDOEPHEDRINE HYDROCHLORIDE
     Indication: Product used for unknown indication
  185. PSEUDOEPHEDRINE HYDROCHLORIDE [Suspect]
     Active Substance: PSEUDOEPHEDRINE HYDROCHLORIDE
  186. PSEUDOEPHEDRINE HYDROCHLORIDE [Suspect]
     Active Substance: PSEUDOEPHEDRINE HYDROCHLORIDE
  187. PSEUDOEPHEDRINE HYDROCHLORIDE [Suspect]
     Active Substance: PSEUDOEPHEDRINE HYDROCHLORIDE
  188. TYLENOL WITH CODEINE [Concomitant]
     Active Substance: ACETAMINOPHEN\CODEINE PHOSPHATE
     Indication: Product used for unknown indication
  189. TYLENOL WITH CODEINE [Concomitant]
     Active Substance: ACETAMINOPHEN\CODEINE PHOSPHATE
  190. CELEBREX [Suspect]
     Active Substance: CELECOXIB
     Indication: Arthritis
     Route: 048
  191. CELEBREX [Suspect]
     Active Substance: CELECOXIB
     Route: 048
  192. CELEBREX [Suspect]
     Active Substance: CELECOXIB
     Route: 048
  193. HYDROCORTISONE ACETATE [Concomitant]
     Active Substance: HYDROCORTISONE ACETATE
     Indication: Product used for unknown indication
  194. HYDROCORTISONE ACETATE [Concomitant]
     Active Substance: HYDROCORTISONE ACETATE
  195. FLUMETHASONE PIVALATE [Suspect]
     Active Substance: FLUMETHASONE PIVALATE
     Indication: Rheumatoid arthritis
     Route: 058
  196. SULFASALAZINE [Suspect]
     Active Substance: SULFASALAZINE
     Indication: Rheumatoid arthritis
  197. SULFASALAZINE [Suspect]
     Active Substance: SULFASALAZINE
  198. SULFASALAZINE [Suspect]
     Active Substance: SULFASALAZINE
  199. SULFASALAZINE [Suspect]
     Active Substance: SULFASALAZINE
     Route: 048
  200. SULFASALAZINE [Suspect]
     Active Substance: SULFASALAZINE
     Route: 048
  201. SULFASALAZINE [Suspect]
     Active Substance: SULFASALAZINE
  202. SULFASALAZINE [Suspect]
     Active Substance: SULFASALAZINE
     Route: 048
  203. SULFASALAZINE [Suspect]
     Active Substance: SULFASALAZINE
  204. SULFASALAZINE [Suspect]
     Active Substance: SULFASALAZINE
     Route: 048
  205. SULFASALAZINE [Suspect]
     Active Substance: SULFASALAZINE
     Route: 048
  206. SULFASALAZINE [Suspect]
     Active Substance: SULFASALAZINE
     Route: 048
  207. SULFASALAZINE [Suspect]
     Active Substance: SULFASALAZINE
  208. SULFASALAZINE [Suspect]
     Active Substance: SULFASALAZINE
     Route: 048
  209. SULFASALAZINE [Suspect]
     Active Substance: SULFASALAZINE
     Route: 048
  210. SULFASALAZINE [Suspect]
     Active Substance: SULFASALAZINE
     Route: 048
  211. SULFASALAZINE [Suspect]
     Active Substance: SULFASALAZINE
  212. SULFASALAZINE [Suspect]
     Active Substance: SULFASALAZINE
     Route: 048
  213. SULFASALAZINE [Suspect]
     Active Substance: SULFASALAZINE
     Route: 048
  214. VITAMIN D3 [Concomitant]
     Active Substance: CHOLECALCIFEROL
     Indication: Product used for unknown indication
  215. VITAMIN D3 [Concomitant]
     Active Substance: CHOLECALCIFEROL
  216. REMICADE [Suspect]
     Active Substance: INFLIXIMAB
     Indication: Rheumatoid arthritis
     Route: 042
  217. REMICADE [Suspect]
     Active Substance: INFLIXIMAB
     Route: 042
  218. REMICADE [Suspect]
     Active Substance: INFLIXIMAB
     Route: 058
  219. REMICADE [Suspect]
     Active Substance: INFLIXIMAB
     Route: 058
  220. ZOPICLONE [Concomitant]
     Active Substance: ZOPICLONE
     Indication: Product used for unknown indication
  221. ZOPICLONE [Concomitant]
     Active Substance: ZOPICLONE
  222. USTEKINUMAB [Suspect]
     Active Substance: USTEKINUMAB
     Indication: Product used for unknown indication
     Route: 058
  223. USTEKINUMAB [Suspect]
     Active Substance: USTEKINUMAB
     Route: 042
  224. PANTOPRAZOLE SODIUM [Concomitant]
     Active Substance: PANTOPRAZOLE SODIUM
     Indication: Product used for unknown indication
  225. PANTOPRAZOLE SODIUM [Concomitant]
     Active Substance: PANTOPRAZOLE SODIUM
  226. LEVOTHYROXINE SODIUM [Concomitant]
     Active Substance: LEVOTHYROXINE SODIUM
     Indication: Product used for unknown indication
  227. LEVOTHYROXINE SODIUM [Concomitant]
     Active Substance: LEVOTHYROXINE SODIUM
  228. ARAVA [Suspect]
     Active Substance: LEFLUNOMIDE
     Indication: Rheumatoid arthritis
     Route: 048
  229. ARAVA [Suspect]
     Active Substance: LEFLUNOMIDE
     Route: 048
  230. ARAVA [Suspect]
     Active Substance: LEFLUNOMIDE
     Route: 048
  231. ARAVA [Suspect]
     Active Substance: LEFLUNOMIDE
  232. ARAVA [Suspect]
     Active Substance: LEFLUNOMIDE
  233. METHOTREXATE [Suspect]
     Active Substance: METHOTREXATE
     Indication: Rheumatoid arthritis
  234. METHOTREXATE [Suspect]
     Active Substance: METHOTREXATE
     Route: 058
  235. METHOTREXATE [Suspect]
     Active Substance: METHOTREXATE
  236. METHOTREXATE [Suspect]
     Active Substance: METHOTREXATE
     Route: 048
  237. METHOTREXATE [Suspect]
     Active Substance: METHOTREXATE
     Route: 048
  238. METHOTREXATE [Suspect]
     Active Substance: METHOTREXATE
     Route: 048
  239. METHOTREXATE [Suspect]
     Active Substance: METHOTREXATE
     Route: 058
  240. METHOTREXATE [Suspect]
     Active Substance: METHOTREXATE
     Route: 058
  241. METHOTREXATE [Suspect]
     Active Substance: METHOTREXATE
     Route: 048
  242. METHOTREXATE [Suspect]
     Active Substance: METHOTREXATE
     Route: 048
  243. METHOTREXATE [Suspect]
     Active Substance: METHOTREXATE
     Route: 048
  244. METHOTREXATE [Suspect]
     Active Substance: METHOTREXATE
     Route: 048
  245. METHOTREXATE [Suspect]
     Active Substance: METHOTREXATE
  246. METHOTREXATE [Suspect]
     Active Substance: METHOTREXATE
     Route: 048
  247. METHOTREXATE [Suspect]
     Active Substance: METHOTREXATE
     Route: 048
  248. METHOTREXATE [Suspect]
     Active Substance: METHOTREXATE
     Route: 048
  249. METHOTREXATE [Suspect]
     Active Substance: METHOTREXATE
  250. METHOTREXATE [Suspect]
     Active Substance: METHOTREXATE
     Route: 048
  251. METHOTREXATE [Suspect]
     Active Substance: METHOTREXATE
     Dosage: 2012/2014
     Route: 013
  252. CHLORAPREP [Suspect]
     Active Substance: CHLORHEXIDINE GLUCONATE\ISOPROPYL ALCOHOL
     Indication: Product used for unknown indication
  253. NAPROXEN SODIUM [Suspect]
     Active Substance: NAPROXEN SODIUM
     Indication: Rheumatoid arthritis
     Dosage: 500 MG, BID
  254. HYRIMOZ [Suspect]
     Active Substance: ADALIMUMAB-ADAZ
     Indication: Rheumatoid arthritis
  255. ORENCIA [Suspect]
     Active Substance: ABATACEPT
     Indication: Rheumatoid arthritis
     Route: 058
  256. ORENCIA [Suspect]
     Active Substance: ABATACEPT
  257. ORENCIA [Suspect]
     Active Substance: ABATACEPT
     Route: 042
  258. ORENCIA [Suspect]
     Active Substance: ABATACEPT
     Route: 058
  259. ORENCIA [Suspect]
     Active Substance: ABATACEPT
     Route: 042
  260. ORENCIA [Suspect]
     Active Substance: ABATACEPT
     Route: 058
  261. ORENCIA [Suspect]
     Active Substance: ABATACEPT
     Route: 058
  262. ORENCIA [Suspect]
     Active Substance: ABATACEPT
     Route: 058
  263. ORENCIA [Suspect]
     Active Substance: ABATACEPT
     Route: 042
  264. ORENCIA [Suspect]
     Active Substance: ABATACEPT
     Route: 058
  265. ORENCIA [Suspect]
     Active Substance: ABATACEPT
  266. ORENCIA [Suspect]
     Active Substance: ABATACEPT
     Route: 042
  267. ORENCIA [Suspect]
     Active Substance: ABATACEPT
     Route: 058
  268. ORENCIA [Suspect]
     Active Substance: ABATACEPT
     Route: 058
  269. ORENCIA [Suspect]
     Active Substance: ABATACEPT
     Route: 048
  270. ORENCIA [Suspect]
     Active Substance: ABATACEPT
     Route: 058
  271. CORTISONE ACETATE [Suspect]
     Active Substance: CORTISONE ACETATE
     Indication: Rheumatoid arthritis
  272. CORTISONE ACETATE [Suspect]
     Active Substance: CORTISONE ACETATE
  273. CORTISONE ACETATE [Suspect]
     Active Substance: CORTISONE ACETATE
  274. CORTISONE ACETATE [Suspect]
     Active Substance: CORTISONE ACETATE
  275. CORTISONE ACETATE [Suspect]
     Active Substance: CORTISONE ACETATE
  276. CORTISONE ACETATE [Suspect]
     Active Substance: CORTISONE ACETATE
     Route: 048
  277. CORTISONE ACETATE [Suspect]
     Active Substance: CORTISONE ACETATE
  278. PIROXICAM [Concomitant]
     Active Substance: PIROXICAM
     Indication: Product used for unknown indication
  279. PIROXICAM [Concomitant]
     Active Substance: PIROXICAM
  280. CALCIUM GLUCONATE [Concomitant]
     Active Substance: CALCIUM GLUCONATE
     Indication: Product used for unknown indication
  281. CALCIUM GLUCONATE [Concomitant]
     Active Substance: CALCIUM GLUCONATE
  282. AZATHIOPRINE [Concomitant]
     Active Substance: AZATHIOPRINE
     Indication: Product used for unknown indication
  283. AZATHIOPRINE [Concomitant]
     Active Substance: AZATHIOPRINE
  284. ZESTRIL [Concomitant]
     Active Substance: LISINOPRIL
     Indication: Product used for unknown indication
  285. ZESTRIL [Concomitant]
     Active Substance: LISINOPRIL
  286. ALBUTEROL [Concomitant]
     Active Substance: ALBUTEROL
     Indication: Product used for unknown indication
  287. ALBUTEROL [Concomitant]
     Active Substance: ALBUTEROL
  288. CETIRIZINE HYDROCHLORIDE [Suspect]
     Active Substance: CETIRIZINE HYDROCHLORIDE
     Indication: Product used for unknown indication
  289. PREDNISONE [Suspect]
     Active Substance: PREDNISONE
     Indication: Rheumatoid arthritis
     Route: 048
  290. PREDNISONE [Suspect]
     Active Substance: PREDNISONE
     Route: 048
  291. PREDNISONE [Suspect]
     Active Substance: PREDNISONE
  292. PREDNISONE [Suspect]
     Active Substance: PREDNISONE
  293. TOFACITINIB [Suspect]
     Active Substance: TOFACITINIB
     Indication: Rheumatoid arthritis
     Route: 048
  294. TOFACITINIB [Suspect]
     Active Substance: TOFACITINIB
  295. TOFACITINIB [Suspect]
     Active Substance: TOFACITINIB
  296. TOFACITINIB [Suspect]
     Active Substance: TOFACITINIB
     Route: 048
  297. DESOGESTREL\ETHINYL ESTRADIOL [Concomitant]
     Active Substance: DESOGESTREL\ETHINYL ESTRADIOL
     Indication: Product used for unknown indication
  298. DESOGESTREL\ETHINYL ESTRADIOL [Concomitant]
     Active Substance: DESOGESTREL\ETHINYL ESTRADIOL
  299. DESOGESTREL\ETHINYL ESTRADIOL [Concomitant]
     Active Substance: DESOGESTREL\ETHINYL ESTRADIOL
  300. ERELZI [Suspect]
     Active Substance: ETANERCEPT-SZZS
     Indication: Rheumatoid arthritis
  301. ERELZI [Suspect]
     Active Substance: ETANERCEPT-SZZS
     Dosage: 50 MG, QW (1 EVERY 1 WEEK)
     Route: 058
  302. ERELZI [Suspect]
     Active Substance: ETANERCEPT-SZZS
  303. DEXAMETHASONE [Concomitant]
     Active Substance: DEXAMETHASONE
     Indication: Product used for unknown indication
  304. DEXAMETHASONE [Concomitant]
     Active Substance: DEXAMETHASONE
  305. ALENDRONATE SODIUM [Suspect]
     Active Substance: ALENDRONATE SODIUM
     Indication: Rheumatoid arthritis
     Route: 048
  306. ALENDRONATE SODIUM [Suspect]
     Active Substance: ALENDRONATE SODIUM
     Route: 048
  307. ALENDRONATE SODIUM [Suspect]
     Active Substance: ALENDRONATE SODIUM
  308. ALENDRONATE SODIUM [Suspect]
     Active Substance: ALENDRONATE SODIUM
  309. MELOXICAM [Concomitant]
     Active Substance: MELOXICAM
     Indication: Product used for unknown indication
  310. MELOXICAM [Concomitant]
     Active Substance: MELOXICAM
  311. ERYTHROMYCIN STEARATE [Concomitant]
     Active Substance: ERYTHROMYCIN STEARATE
     Indication: Product used for unknown indication
  312. ERYTHROMYCIN STEARATE [Concomitant]
     Active Substance: ERYTHROMYCIN STEARATE
  313. CETIRIZINE HYDROCHLORIDE\PSEUDOEPHEDRINE HYDROCHLORIDE [Suspect]
     Active Substance: CETIRIZINE HYDROCHLORIDE\PSEUDOEPHEDRINE HYDROCHLORIDE
     Indication: Rheumatoid arthritis
  314. CETIRIZINE HYDROCHLORIDE\PSEUDOEPHEDRINE HYDROCHLORIDE [Suspect]
     Active Substance: CETIRIZINE HYDROCHLORIDE\PSEUDOEPHEDRINE HYDROCHLORIDE
     Indication: Product used for unknown indication
  315. OXYCODONE TEREPHTHALATE [Suspect]
     Active Substance: OXYCODONE TEREPHTHALATE
     Indication: Product used for unknown indication
  316. OXYCODONE TEREPHTHALATE [Suspect]
     Active Substance: OXYCODONE TEREPHTHALATE
  317. MAGNESIUM [Concomitant]
     Active Substance: MAGNESIUM
     Indication: Product used for unknown indication
  318. GOLIMUMAB [Suspect]
     Active Substance: GOLIMUMAB
     Indication: Rheumatoid arthritis
  319. VITAMIN C [Concomitant]
     Active Substance: ASCORBIC ACID
     Indication: Product used for unknown indication
  320. VITAMIN C [Concomitant]
     Active Substance: ASCORBIC ACID
  321. TOFACITINIB CITRATE [Suspect]
     Active Substance: TOFACITINIB CITRATE
     Indication: Rheumatoid arthritis
  322. CORTISONE [Suspect]
     Active Substance: CORTISONE
     Indication: Rheumatoid arthritis
  323. CORTISONE [Suspect]
     Active Substance: CORTISONE
     Route: 058
  324. CORTISONE [Suspect]
     Active Substance: CORTISONE
     Route: 048
  325. HYDROXYCHLOROQUINE [Suspect]
     Active Substance: HYDROXYCHLOROQUINE
     Indication: Rheumatoid arthritis
  326. HYDROXYCHLOROQUINE [Suspect]
     Active Substance: HYDROXYCHLOROQUINE
     Dosage: 400 MG, QD (1 EVERY 1 DAYS)
     Route: 048
  327. HYDROXYCHLOROQUINE [Suspect]
     Active Substance: HYDROXYCHLOROQUINE
  328. CETIRIZINE HYDROCHLORIDE\PSEUDOEPHEDRINE HYDROCHLORIDE [Suspect]
     Active Substance: CETIRIZINE HYDROCHLORIDE\PSEUDOEPHEDRINE HYDROCHLORIDE
     Indication: Product used for unknown indication
  329. DICLOFENAC POTASSIUM [Suspect]
     Active Substance: DICLOFENAC POTASSIUM
     Indication: Rheumatoid arthritis
     Route: 048
  330. DICLOFENAC POTASSIUM [Suspect]
     Active Substance: DICLOFENAC POTASSIUM
     Route: 048
  331. DICLOFENAC POTASSIUM [Suspect]
     Active Substance: DICLOFENAC POTASSIUM
     Route: 065
  332. DICLOFENAC POTASSIUM [Suspect]
     Active Substance: DICLOFENAC POTASSIUM
     Route: 048
  333. DICLOFENAC POTASSIUM [Suspect]
     Active Substance: DICLOFENAC POTASSIUM
     Route: 065
  334. DICLOFENAC POTASSIUM [Suspect]
     Active Substance: DICLOFENAC POTASSIUM
  335. TUMS [Suspect]
     Active Substance: CALCIUM CARBONATE
     Indication: Product used for unknown indication
  336. TUMS [Suspect]
     Active Substance: CALCIUM CARBONATE
  337. TUMS [Suspect]
     Active Substance: CALCIUM CARBONATE
  338. TUMS [Suspect]
     Active Substance: CALCIUM CARBONATE
  339. GLUCOSAMINE [Concomitant]
     Active Substance: GLUCOSAMINE
     Indication: Product used for unknown indication
  340. GLUCOSAMINE [Concomitant]
     Active Substance: GLUCOSAMINE
  341. DICLOFENAC [Suspect]
     Active Substance: DICLOFENAC
     Indication: Product used for unknown indication
  342. DICLOFENAC [Suspect]
     Active Substance: DICLOFENAC

REACTIONS (196)
  - Pulmonary fibrosis [Fatal]
  - Product use issue [Fatal]
  - Pain [Fatal]
  - Off label use [Fatal]
  - Pyrexia [Fatal]
  - Road traffic accident [Fatal]
  - Muscle spasms [Fatal]
  - Chest pain [Fatal]
  - Sleep disorder due to general medical condition, insomnia type [Not Recovered/Not Resolved]
  - Swelling [Fatal]
  - Paraesthesia [Fatal]
  - Facet joint syndrome [Fatal]
  - Urticaria [Fatal]
  - Peripheral venous disease [Fatal]
  - Vomiting [Unknown]
  - Sciatica [Unknown]
  - Rash [Fatal]
  - Prescribed overdose [Fatal]
  - Wheezing [Fatal]
  - Obesity [Fatal]
  - Pain in extremity [Fatal]
  - Lupus vulgaris [Fatal]
  - Sinusitis [Fatal]
  - Peripheral swelling [Fatal]
  - Therapeutic product effect decreased [Fatal]
  - Rheumatic fever [Fatal]
  - Psoriatic arthropathy [Fatal]
  - Rheumatoid factor positive [Fatal]
  - Stomatitis [Fatal]
  - Type 2 diabetes mellitus [Fatal]
  - Pruritus [Fatal]
  - Therapy non-responder [Unknown]
  - Product use in unapproved indication [Fatal]
  - Weight increased [Fatal]
  - Treatment failure [Fatal]
  - Wound [Fatal]
  - Pericarditis [Fatal]
  - Swollen joint count increased [Not Recovered/Not Resolved]
  - Breast cancer stage II [Fatal]
  - Ulcer haemorrhage [Fatal]
  - Lupus-like syndrome [Fatal]
  - Breast cancer stage III [Fatal]
  - Hepatic cirrhosis [Fatal]
  - Autoimmune disorder [Fatal]
  - Crohn^s disease [Fatal]
  - Drug tolerance decreased [Fatal]
  - Liver injury [Fatal]
  - Wound infection [Fatal]
  - Glossodynia [Fatal]
  - Respiratory disorder [Fatal]
  - Abdominal discomfort [Fatal]
  - Diarrhoea [Fatal]
  - Nausea [Fatal]
  - Dizziness [Fatal]
  - Decreased appetite [Fatal]
  - Blister [Fatal]
  - Musculoskeletal stiffness [Fatal]
  - Alopecia [Fatal]
  - Headache [Fatal]
  - Bursitis [Fatal]
  - General physical health deterioration [Fatal]
  - Insomnia [Fatal]
  - Anxiety [Fatal]
  - Lower limb fracture [Fatal]
  - Blepharospasm [Fatal]
  - C-reactive protein increased [Fatal]
  - Drug hypersensitivity [Fatal]
  - Anti-cyclic citrullinated peptide antibody positive [Fatal]
  - Neck pain [Fatal]
  - Epilepsy [Fatal]
  - Systemic lupus erythematosus [Fatal]
  - Deep vein thrombosis postoperative [Fatal]
  - Liver disorder [Fatal]
  - Delirium [Fatal]
  - Lower respiratory tract infection [Fatal]
  - Helicobacter infection [Fatal]
  - Pemphigus [Fatal]
  - Synovitis [Fatal]
  - Duodenal ulcer perforation [Fatal]
  - Rheumatoid arthritis [Fatal]
  - Arthralgia [Fatal]
  - Pneumonia [Fatal]
  - Blood cholesterol increased [Fatal]
  - Hepatic enzyme increased [Fatal]
  - Injury [Fatal]
  - Fatigue [Fatal]
  - Hand deformity [Fatal]
  - Hypertension [Fatal]
  - Fibromyalgia [Fatal]
  - Arthropathy [Fatal]
  - Malaise [Fatal]
  - Joint swelling [Fatal]
  - Abdominal pain upper [Fatal]
  - Hypoaesthesia [Fatal]
  - Infusion related reaction [Fatal]
  - Contusion [Fatal]
  - Asthma [Fatal]
  - Depression [Fatal]
  - Gastrooesophageal reflux disease [Fatal]
  - Asthenia [Fatal]
  - Confusional state [Fatal]
  - Musculoskeletal pain [Fatal]
  - Muscle injury [Fatal]
  - Lung disorder [Fatal]
  - Night sweats [Fatal]
  - Taste disorder [Fatal]
  - Osteoarthritis [Fatal]
  - Adverse drug reaction [Not Recovered/Not Resolved]
  - Drug ineffective [Fatal]
  - Psoriasis [Fatal]
  - Maternal exposure during pregnancy [Fatal]
  - Loss of consciousness [Not Recovered/Not Resolved]
  - Adrenal insufficiency [Not Recovered/Not Resolved]
  - Condition aggravated [Fatal]
  - Mobility decreased [Not Recovered/Not Resolved]
  - Oedema [Unknown]
  - Abdominal pain [Not Recovered/Not Resolved]
  - Infection [Fatal]
  - Back injury [Fatal]
  - Gait inability [Fatal]
  - Migraine [Fatal]
  - X-ray abnormal [Fatal]
  - Adjustment disorder with depressed mood [Fatal]
  - Bone erosion [Fatal]
  - Exostosis [Fatal]
  - Gait disturbance [Fatal]
  - Gastrointestinal disorder [Fatal]
  - Ill-defined disorder [Fatal]
  - Inflammation [Fatal]
  - Laryngitis [Fatal]
  - Live birth [Fatal]
  - Medication error [Fatal]
  - Memory impairment [Fatal]
  - Product quality issue [Not Recovered/Not Resolved]
  - Red blood cell sedimentation rate increased [Fatal]
  - Joint stiffness [Fatal]
  - Retinitis [Fatal]
  - C-reactive protein abnormal [Fatal]
  - Osteoporosis [Fatal]
  - Tachycardia [Fatal]
  - Upper respiratory tract infection [Fatal]
  - Visual impairment [Fatal]
  - Ear infection [Fatal]
  - Therapeutic product effect incomplete [Fatal]
  - Amnesia [Fatal]
  - Weight fluctuation [Fatal]
  - Joint dislocation [Fatal]
  - Hypercholesterolaemia [Fatal]
  - Muscular weakness [Fatal]
  - Sleep disorder [Fatal]
  - Liver function test increased [Fatal]
  - Impaired healing [Fatal]
  - Irritable bowel syndrome [Fatal]
  - Nasopharyngitis [Fatal]
  - Onychomadesis [Fatal]
  - Dyspepsia [Fatal]
  - Discomfort [Fatal]
  - Hypersensitivity [Fatal]
  - Intentional product use issue [Fatal]
  - Contraindicated product administered [Fatal]
  - Hypokalaemia [Not Recovered/Not Resolved]
  - Drug intolerance [Fatal]
  - Polyarthritis [Not Recovered/Not Resolved]
  - Joint destruction [Not Recovered/Not Resolved]
  - Immunodeficiency [Not Recovered/Not Resolved]
  - Drug tolerance [Unknown]
  - Incorrect route of product administration [Fatal]
  - Drug ineffective for unapproved indication [Fatal]
  - Dry mouth [Fatal]
  - Folliculitis [Fatal]
  - Dyspnoea [Fatal]
  - Ear pain [Fatal]
  - Grip strength decreased [Fatal]
  - Joint range of motion decreased [Fatal]
  - Lip dry [Fatal]
  - Nail disorder [Fatal]
  - Weight decreased [Fatal]
  - Drug-induced liver injury [Fatal]
  - Colitis ulcerative [Fatal]
  - Dislocation of vertebra [Unknown]
  - Leukopenia [Not Recovered/Not Resolved]
  - Disability [Fatal]
  - Rash pruritic [Not Recovered/Not Resolved]
  - Frequent bowel movements [Fatal]
  - Oedema peripheral [Fatal]
  - Anti-cyclic citrullinated peptide antibody [Fatal]
  - Feeling hot [Fatal]
  - Bronchitis [Fatal]
  - Pregnancy [Unknown]
  - Adverse event [Fatal]
  - Hypertransaminasaemia [Not Recovered/Not Resolved]
  - Maternal exposure timing unspecified [Unknown]
  - Exposure during pregnancy [Not Recovered/Not Resolved]
  - Arthritis [Fatal]
  - Foot deformity [Fatal]
  - Prescribed underdose [Fatal]
